FAERS Safety Report 5562916-2 (Version None)
Quarter: 2007Q4

REPORT INFORMATION
  Report Type: 
  Country: None (occurrence: None)
  Receive Date: 20071211
  Receipt Date: 20071211
  Transmission Date: 20080405
  Serious: No
  Sender: FDA-Public Use
  Company Number: None

PATIENT
  Sex: Male
  Weight: 77.1115 kg

DRUGS (4)
  1. CHANTIX [Suspect]
     Indication: SMOKING CESSATION THERAPY
     Dosage: .5 MG 1 WEEK 2X A DAY PO
     Route: 048
     Dates: start: 20070731, end: 20070806
  2. CHANTIX [Suspect]
     Indication: SMOKING CESSATION THERAPY
     Dosage: 1.0 3 WEEKS 2X A DAY PO
     Route: 048
     Dates: start: 20070807, end: 20070828
  3. DOXYCYCLINE [Concomitant]
  4. PREDNISONE [Concomitant]

REACTIONS (10)
  - ARTHRALGIA [None]
  - BLOOD THYROID STIMULATING HORMONE DECREASED [None]
  - DIABETES MELLITUS [None]
  - HYPOAESTHESIA FACIAL [None]
  - ILL-DEFINED DISORDER [None]
  - MALE ORGASMIC DISORDER [None]
  - MUSCULAR WEAKNESS [None]
  - NEUROPATHY PERIPHERAL [None]
  - POLLAKIURIA [None]
  - VISION BLURRED [None]
